FAERS Safety Report 15920999 (Version 1)
Quarter: 2019Q1

REPORT INFORMATION
  Report Type: Report from Study
  Country: US (occurrence: US)
  Receive Date: 20190205
  Receipt Date: 20190205
  Transmission Date: 20190417
  Serious: Yes (Other)
  Sender: FDA-Public Use
  Company Number: US-GILEAD-2019-0388215

PATIENT
  Age: 75 Year
  Sex: Female

DRUGS (22)
  1. AMBRISENTAN [Suspect]
     Active Substance: AMBRISENTAN
     Indication: PULMONARY ARTERIAL HYPERTENSION
     Dosage: 10 MG, QD
     Route: 065
     Dates: start: 20160217
  2. TADALAFIL. [Concomitant]
     Active Substance: TADALAFIL
  3. CYANOCOBALAMIN. [Concomitant]
     Active Substance: CYANOCOBALAMIN
  4. DIOVAN [Concomitant]
     Active Substance: VALSARTAN
  5. HYDROXYCHLOROQUINE [Concomitant]
     Active Substance: HYDROXYCHLOROQUINE
  6. SYNTHROID [Concomitant]
     Active Substance: LEVOTHYROXINE SODIUM
  7. METOLAZONE. [Concomitant]
     Active Substance: METOLAZONE
  8. TRAMADOL HYDROCHLORIDE AND ACETAMINOPHEN [Concomitant]
     Active Substance: ACETAMINOPHEN\TRAMADOL HYDROCHLORIDE
  9. POTASSIUM CHLORIDE. [Concomitant]
     Active Substance: POTASSIUM CHLORIDE
  10. PREMARIN [Concomitant]
     Active Substance: ESTROGENS, CONJUGATED
  11. PROMETHAZINE [Concomitant]
     Active Substance: PROMETHAZINE\PROMETHAZINE HYDROCHLORIDE
  12. PREDNISONE. [Concomitant]
     Active Substance: PREDNISONE
  13. VITAMIN D [Concomitant]
     Active Substance: CHOLECALCIFEROL
  14. FUROSEMIDE. [Concomitant]
     Active Substance: FUROSEMIDE
  15. MATZIM LA [Concomitant]
     Active Substance: DILTIAZEM HYDROCHLORIDE
  16. NITROFUR [Concomitant]
     Active Substance: NITROFURANTOIN
  17. AZATHIOPRINE. [Concomitant]
     Active Substance: AZATHIOPRINE
  18. OLMESARTAN MEDOXOMIL. [Concomitant]
     Active Substance: OLMESARTAN MEDOXOMIL
  19. VALSARTAN. [Concomitant]
     Active Substance: VALSARTAN
  20. XIIDRA [Concomitant]
     Active Substance: LIFITEGRAST
  21. ALPRAZOLAM. [Concomitant]
     Active Substance: ALPRAZOLAM
  22. FLUTICASONE. [Concomitant]
     Active Substance: FLUTICASONE

REACTIONS (1)
  - Myasthenia gravis [Not Recovered/Not Resolved]

NARRATIVE: CASE EVENT DATE: 201806
